FAERS Safety Report 6979477-3 (Version None)
Quarter: 2010Q3

REPORT INFORMATION
  Report Type: 
  Country: None (occurrence: None)
  Receive Date: 20100908
  Receipt Date: 20100827
  Transmission Date: 20110219
  Serious: Yes (Other)
  Sender: FDA-Public Use
  Company Number: DKLU1064722

PATIENT

DRUGS (1)
  1. ELSPAR [Suspect]
     Indication: ACUTE LYMPHOCYTIC LEUKAEMIA

REACTIONS (5)
  - COAGULOPATHY [None]
  - ISCHAEMIA [None]
  - NEUROTOXICITY [None]
  - PETIT MAL EPILEPSY [None]
  - VASCULAR CALCIFICATION [None]
